FAERS Safety Report 7540495-8 (Version None)
Quarter: 2011Q2

REPORT INFORMATION
  Report Type: 
  Country: None (occurrence: None)
  Receive Date: 20110610
  Receipt Date: 20110601
  Transmission Date: 20111010
  Serious: Yes (Congenital Anomaly)
  Sender: FDA-Public Use
  Company Number: A0906688A

PATIENT
  Weight: 2.1 kg

DRUGS (6)
  1. TRUVADA [Suspect]
     Indication: ANTIVIRAL TREATMENT
     Dosage: 1TAB PER DAY
     Route: 064
     Dates: start: 20101021
  2. KALETRA [Suspect]
     Indication: ANTIVIRAL TREATMENT
     Dosage: 4TAB PER DAY
     Route: 064
     Dates: start: 20100727, end: 20101020
  3. NORVIR [Suspect]
     Indication: ANTIVIRAL TREATMENT
     Dosage: 100MGD PER DAY
     Route: 064
     Dates: start: 20101021
  4. REYATAZ [Suspect]
     Indication: ANTIVIRAL TREATMENT
     Dosage: 300MGD PER DAY
     Route: 064
     Dates: start: 20101021, end: 20110128
  5. COMBIVIR [Suspect]
     Indication: ANTIVIRAL TREATMENT
     Dosage: 2TAB PER DAY
     Route: 064
     Dates: start: 20100727, end: 20101020
  6. REYATAZ [Suspect]
     Dosage: 400MGD PER DAY
     Route: 048
     Dates: start: 20110129

REACTIONS (6)
  - DILATATION ATRIAL [None]
  - PATENT DUCTUS ARTERIOSUS [None]
  - ATRIAL SEPTAL DEFECT [None]
  - DRUG EXPOSURE DURING PREGNANCY [None]
  - PREMATURE BABY [None]
  - VENTRICULAR SEPTAL DEFECT [None]
